FAERS Safety Report 16788888 (Version 1)
Quarter: 2019Q3

REPORT INFORMATION
  Report Type: Spontaneous
  Country: SE (occurrence: SE)
  Receive Date: 20190910
  Receipt Date: 20190910
  Transmission Date: 20191005
  Serious: Yes (Other)
  Sender: FDA-Public Use
  Company Number: SE-TEVA-2019-SE-1103699

PATIENT
  Age: 75 Year
  Sex: Female

DRUGS (1)
  1. LETROZOLE. [Suspect]
     Active Substance: LETROZOLE
     Route: 065
     Dates: end: 20190802

REACTIONS (2)
  - Depressed mood [Unknown]
  - Tachycardia [Unknown]

NARRATIVE: CASE EVENT DATE: 2019
